FAERS Safety Report 9351386 (Version 1)
Quarter: 2013Q2

REPORT INFORMATION
  Report Type: Spontaneous
  Country: CA (occurrence: CA)
  Receive Date: 20130617
  Receipt Date: 20130617
  Transmission Date: 20140414
  Serious: Yes (Other)
  Sender: FDA-Public Use
  Company Number: CA-JNJFOC-20130608091

PATIENT
  Sex: Female

DRUGS (1)
  1. VISINE MULTI-SYMPTOM RELIEF [Suspect]
     Indication: SUPERFICIAL INJURY OF EYE
     Route: 047

REACTIONS (5)
  - Vision blurred [Unknown]
  - Visual acuity reduced [Unknown]
  - Eye pain [Unknown]
  - Eye disorder [Unknown]
  - Eye irritation [Unknown]
